FAERS Safety Report 6443216-5 (Version None)
Quarter: 2009Q4

REPORT INFORMATION
  Report Type: 
  Country: None (occurrence: None)
  Receive Date: 20091117
  Receipt Date: 20091112
  Transmission Date: 20100525
  Serious: Yes (Death)
  Sender: FDA-Public Use
  Company Number: CN-ASTRAZENECA-2009SE26424

PATIENT
  Age: 19 Year
  Sex: Female

DRUGS (3)
  1. SEROQUEL [Suspect]
     Indication: BIPOLAR DISORDER
     Route: 048
     Dates: start: 20091101, end: 20091101
  2. SEROQUEL [Suspect]
     Route: 048
     Dates: start: 20091101
  3. CARBAMAZEPINE [Concomitant]
     Indication: EPILEPSY

REACTIONS (1)
  - TOXIC ENCEPHALOPATHY [None]
